FAERS Safety Report 4961797-5 (Version None)
Quarter: 2006Q1

REPORT INFORMATION
  Report Type: 
  Country: None (occurrence: None)
  Receive Date: 20060329
  Receipt Date: 20060321
  Transmission Date: 20060701
  Serious: Yes (Death, Other)
  Sender: FDA-Public Use
  Company Number: 2006US000232

PATIENT
  Age: 30 Year
  Sex: Male

DRUGS (6)
  1. PROGRAF [Suspect]
     Indication: STEM CELL TRANSPLANT
     Dosage: SEE IMAGE
     Route: 042
     Dates: start: 20051207
  2. AUGMENTIN '125' [Suspect]
     Indication: UPPER RESPIRATORY TRACT INFECTION
     Dosage: 1 DF, BID
     Dates: start: 20051231, end: 20051231
  3. AVELOX [Concomitant]
  4. FLUCONAZOLE [Concomitant]
  5. ACYCLOVIR [Concomitant]
  6. PREDNISONE [Concomitant]

REACTIONS (5)
  - INFECTION [None]
  - PAIN [None]
  - SINUSITIS [None]
  - STEVENS-JOHNSON SYNDROME [None]
  - UPPER RESPIRATORY TRACT INFECTION [None]
